FAERS Safety Report 20435299 (Version 1)
Quarter: 2022Q1

REPORT INFORMATION
  Report Type: Spontaneous
  Country: US (occurrence: US)
  Receive Date: 20220206
  Receipt Date: 20220206
  Transmission Date: 20220423
  Serious: No
  Sender: FDA-Public Use
  Company Number: US-SANOFI-00955071

PATIENT
  Sex: Male
  Weight: 141.5 kg

DRUGS (1)
  1. LOVENOX [Suspect]
     Active Substance: ENOXAPARIN SODIUM
     Dosage: THEY HAVE HIM TAKING 70 MG TWICE A DAY

REACTIONS (2)
  - Renal disorder [Unknown]
  - Creatinine renal clearance decreased [Unknown]
